FAERS Safety Report 5535194-8 (Version None)
Quarter: 2007Q4

REPORT INFORMATION
  Report Type: 
  Country: None (occurrence: None)
  Receive Date: 20071206
  Receipt Date: 20071126
  Transmission Date: 20080405
  Serious: Yes (Hospitalization)
  Sender: FDA-Public Use
  Company Number: US-JNJFOC-20071110038

PATIENT
  Sex: Female
  Weight: 61.24 kg

DRUGS (4)
  1. DURAGESIC-100 [Suspect]
     Route: 062
  2. DURAGESIC-100 [Suspect]
     Route: 062
  3. DURAGESIC-100 [Suspect]
     Indication: PAIN
     Route: 062
  4. PERCOCET [Concomitant]
     Indication: BREAKTHROUGH PAIN
     Dosage: 5/325
     Route: 048

REACTIONS (8)
  - BLOOD PRESSURE DECREASED [None]
  - DRY EYE [None]
  - EYE LASER SURGERY [None]
  - HEART RATE INCREASED [None]
  - HYSTERECTOMY [None]
  - INAPPROPRIATE SCHEDULE OF DRUG ADMINISTRATION [None]
  - MIGRAINE [None]
  - RESPIRATORY RATE DECREASED [None]
